FAERS Safety Report 5027500-8 (Version None)
Quarter: 2006Q2

REPORT INFORMATION
  Report Type: 
  Country: None (occurrence: None)
  Receive Date: 20060501
  Receipt Date: 20060306
  Transmission Date: 20061013
  Serious: Yes (Life-Threatening, Other)
  Sender: FDA-Public Use
  Company Number: 200611674US

PATIENT
  Age: 52 Year
  Sex: Female

DRUGS (1)
  1. KETEK [Suspect]
     Indication: UPPER RESPIRATORY TRACT INFECTION
     Dosage: BID
     Dates: start: 20060207, end: 20060211

REACTIONS (4)
  - ANAPHYLACTIC REACTION [None]
  - RASH [None]
  - SWELLING [None]
  - SWOLLEN TONGUE [None]
